FAERS Safety Report 4744544-1 (Version None)
Quarter: 2005Q3

REPORT INFORMATION
  Report Type: 
  Country: None (occurrence: None)
  Receive Date: 20050812
  Receipt Date: 20050803
  Transmission Date: 20060218
  Serious: Yes (Other)
  Sender: FDA-Public Use
  Company Number: GB-ABBOTT-05P-167-0307443-00

PATIENT
  Age: 30 Year

DRUGS (1)
  1. DEPAKOTE [Suspect]
     Indication: ABNORMAL BEHAVIOUR
     Dates: start: 20050101

REACTIONS (1)
  - CONVULSION [None]
